FAERS Safety Report 18819225 (Version 2)
Quarter: 2021Q1

REPORT INFORMATION
  Report Type: Spontaneous
  Country: CA (occurrence: CA)
  Receive Date: 20210202
  Receipt Date: 20210203
  Transmission Date: 20210419
  Serious: Yes (Other)
  Sender: FDA-Public Use
  Company Number: CA-JNJFOC-20210144579

PATIENT
  Age: 65 Year
  Sex: Male
  Weight: 81 kg

DRUGS (5)
  1. ESOMEPRAZOLE MAGNESIUM TRIHYDRATE [Concomitant]
     Active Substance: ESOMEPRAZOLE MAGNESIUM
     Indication: GASTROOESOPHAGEAL REFLUX DISEASE
  2. INFLIXIMAB, RECOMBINANT [Suspect]
     Active Substance: INFLIXIMAB
     Indication: PSORIATIC ARTHROPATHY
     Route: 042
  3. ALLOPURINOL. [Concomitant]
     Active Substance: ALLOPURINOL
     Indication: GASTROOESOPHAGEAL REFLUX DISEASE
  4. INFLIXIMAB, RECOMBINANT [Suspect]
     Active Substance: INFLIXIMAB
     Indication: RHEUMATOID ARTHRITIS
     Route: 042
  5. INFLIXIMAB, RECOMBINANT [Suspect]
     Active Substance: INFLIXIMAB
     Indication: PSORIASIS

REACTIONS (9)
  - Spinal fracture [Unknown]
  - Weight decreased [Unknown]
  - Product use issue [Unknown]
  - Blood pressure increased [Unknown]
  - Therapeutic response shortened [Unknown]
  - Off label use [Unknown]
  - Blood pressure fluctuation [Unknown]
  - Blood pressure decreased [Unknown]
  - Intentional product use issue [Unknown]
